FAERS Safety Report 7781006-1 (Version None)
Quarter: 2011Q3

REPORT INFORMATION
  Report Type: 
  Country: None (occurrence: None)
  Receive Date: 20110927
  Receipt Date: 20110913
  Transmission Date: 20111222
  Serious: Yes (Other)
  Sender: FDA-Public Use
  Company Number: PHHY2011CA78091

PATIENT
  Sex: Female

DRUGS (15)
  1. SANDOSTATIN LAR [Suspect]
     Indication: DIARRHOEA
     Dosage: 20 MG, EVERY 4 WEEKS
     Route: 030
     Dates: start: 20110713, end: 20110713
  2. ESCITALOPRAM [Concomitant]
  3. MERCAPTOPURINE [Concomitant]
  4. CORTISONE ACETATE [Concomitant]
     Dosage: UNK
  5. ATIVAN [Concomitant]
  6. FUCIDINE CAP [Concomitant]
     Dosage: UNK
  7. PREVACID [Concomitant]
  8. FLEXERIL [Concomitant]
  9. CALCIUM CARBONATE [Concomitant]
  10. ROCALTROL [Concomitant]
  11. VICKS VAPOSTEAM LIQUID MEDICATION [Concomitant]
     Dosage: UNK
  12. DECONGESTANTS AND ANTIALLERGICS [Concomitant]
     Dosage: UNK UKN, UNK
  13. TRIAZIDE [Concomitant]
  14. METRONIDAZOLE [Concomitant]
     Dosage: UNK
  15. PRIMACOR [Concomitant]

REACTIONS (13)
  - BLOOD MAGNESIUM DECREASED [None]
  - INJECTION SITE PAIN [None]
  - ABDOMINAL DISTENSION [None]
  - CONSTIPATION [None]
  - DIARRHOEA [None]
  - ABDOMINAL PAIN [None]
  - DRY MOUTH [None]
  - ROSACEA [None]
  - RASH [None]
  - PAIN [None]
  - SINUS CONGESTION [None]
  - GASTROINTESTINAL PAIN [None]
  - HEADACHE [None]
